FAERS Safety Report 6337626-4 (Version None)
Quarter: 2009Q3

REPORT INFORMATION
  Report Type: 
  Country: None (occurrence: None)
  Receive Date: 20090902
  Receipt Date: 20090821
  Transmission Date: 20100115
  Serious: Yes (Death, Hospitalization, Other)
  Sender: FDA-Public Use
  Company Number: US-ELI_LILLY_AND_COMPANY-US200612002089

PATIENT
  Sex: Female
  Weight: 126.98 kg

DRUGS (3)
  1. ZYPREXA [Suspect]
  2. RISPERDAL [Concomitant]
     Indication: MENTAL DISORDER
     Dosage: 3 MG, UNK
     Dates: start: 19990124, end: 20050324
  3. RISPERDAL [Concomitant]
     Dosage: 1 D/F, UNK

REACTIONS (3)
  - BLOOD CHOLESTEROL INCREASED [None]
  - DIABETES MELLITUS [None]
  - DIABETIC COMA [None]
